FAERS Safety Report 8083367-5 (Version None)
Quarter: 2012Q1

REPORT INFORMATION
  Report Type: 
  Country: None (occurrence: None)
  Receive Date: 20120127
  Receipt Date: 20110116
  Transmission Date: 20120608
  Serious: No
  Sender: FDA-Public Use
  Company Number: US-ABBOTT-11P-163-0697813-00

PATIENT
  Age: 72 Year
  Sex: Female

DRUGS (5)
  1. LUNESTA [Concomitant]
     Indication: INSOMNIA
  2. HUMIRA [Suspect]
     Indication: CROHN'S DISEASE
     Dates: start: 20101101
  3. LYRICA [Concomitant]
     Indication: BACK DISORDER
  4. PREDNISONE TAB [Concomitant]
     Indication: CROHN'S DISEASE
  5. NEXIUM [Concomitant]
     Indication: DYSPEPSIA
     Dosage: DAILY

REACTIONS (1)
  - INJECTION SITE DISCOLOURATION [None]
